FAERS Safety Report 10353031 (Version 1)
Quarter: 2014Q3

REPORT INFORMATION
  Report Type: Spontaneous
  Country: US (occurrence: US)
  Receive Date: 20140730
  Receipt Date: 20140730
  Transmission Date: 20150326
  Serious: No
  Sender: FDA-Public Use
  Company Number: US-ABBVIE-13P-163-1143250-00

PATIENT
  Age: 58 Year
  Sex: Female
  Weight: 72.64 kg

DRUGS (10)
  1. SYNTHROID [Suspect]
     Active Substance: LEVOTHYROXINE SODIUM
     Dates: start: 2010, end: 2010
  2. LEVOXYL [Suspect]
     Active Substance: LEVOTHYROXINE SODIUM
     Indication: AUTOIMMUNE THYROIDITIS
  3. UNNAMED DRUG FROM EUROPE [Suspect]
     Active Substance: UNSPECIFIED INGREDIENT
     Indication: AUTOIMMUNE THYROIDITIS
  4. HYDROCODONE [Concomitant]
     Active Substance: HYDROCODONE
     Indication: SPINAL PAIN
  5. LEVOTHYROXINE [Suspect]
     Active Substance: LEVOTHYROXINE
     Indication: AUTOIMMUNE THYROIDITIS
  6. SYNTHROID [Suspect]
     Active Substance: LEVOTHYROXINE SODIUM
     Indication: AUTOIMMUNE THYROIDITIS
     Dates: start: 2008, end: 2008
  7. HYDROCODONE [Concomitant]
     Active Substance: HYDROCODONE
     Indication: BONE EROSION
  8. HYDROCODONE [Concomitant]
     Active Substance: HYDROCODONE
     Indication: BONE PAIN
  9. UNNAMED T3 MEDICATION [Suspect]
     Active Substance: UNSPECIFIED INGREDIENT
     Indication: AUTOIMMUNE THYROIDITIS
     Dates: start: 2013, end: 2013
  10. HYDROCODONE [Concomitant]
     Active Substance: HYDROCODONE
     Indication: SPINAL COLUMN STENOSIS

REACTIONS (7)
  - Hyperthyroidism [Unknown]
  - Hyperacusis [Recovered/Resolved]
  - Panic attack [Recovered/Resolved]
  - Nightmare [Recovered/Resolved]
  - Blood thyroid stimulating hormone increased [Unknown]
  - Heart rate increased [Recovered/Resolved]
  - Dyspnoea exertional [Recovered/Resolved]

NARRATIVE: CASE EVENT DATE: 201308
